FAERS Safety Report 11152133 (Version 1)
Quarter: 2015Q2

REPORT INFORMATION
  Report Type: Report from Study
  Country: US (occurrence: US)
  Receive Date: 20150601
  Receipt Date: 20150601
  Transmission Date: 20150821
  Serious: Yes (Other)
  Sender: FDA-Public Use
  Company Number: US-ASTELLAS-2015US015783

PATIENT
  Sex: Male

DRUGS (2)
  1. ERLOTINIB [Suspect]
     Active Substance: ERLOTINIB
     Indication: MALIGNANT RESPIRATORY TRACT NEOPLASM
     Route: 065
  2. ERLOTINIB [Suspect]
     Active Substance: ERLOTINIB
     Dosage: 75 UNK, UNK
     Route: 065

REACTIONS (2)
  - Malignant neoplasm progression [Unknown]
  - Rash [Unknown]
